FAERS Safety Report 5657455-4 (Version None)
Quarter: 2008Q1

REPORT INFORMATION
  Report Type: 
  Country: None (occurrence: None)
  Receive Date: 20080310
  Receipt Date: 20080227
  Transmission Date: 20080703
  Serious: Yes (Life-Threatening, Hospitalization, Other)
  Sender: FDA-Public Use
  Company Number: GB-ELI_LILLY_AND_COMPANY-GB200802006546

PATIENT
  Age: 55 Year
  Sex: Female

DRUGS (3)
  1. PROZAC [Suspect]
     Indication: SCHIZOPHRENIA
     Dosage: 20 MG, UNK
     Dates: start: 20080201
  2. RISPERIDONE [Concomitant]
     Dosage: 1 MG, 2/D
     Dates: start: 20071201
  3. RISPERIDONE [Concomitant]
     Dosage: 2 MG, 2/D
     Dates: end: 20080201

REACTIONS (6)
  - AGITATION [None]
  - BLOOD POTASSIUM DECREASED [None]
  - BRAIN OEDEMA [None]
  - CONVULSION [None]
  - HYPONATRAEMIA [None]
  - SYNCOPE [None]
